FAERS Safety Report 9540232 (Version 1)
Quarter: 2013Q3

REPORT INFORMATION
  Report Type: Spontaneous
  Country: US (occurrence: US)
  Receive Date: 20130920
  Receipt Date: 20130920
  Transmission Date: 20140515
  Serious: Yes (Hospitalization)
  Sender: FDA-Public Use
  Company Number: US-ELI_LILLY_AND_COMPANY-US201309003428

PATIENT
  Age: 27 Year
  Sex: Male

DRUGS (2)
  1. ALIMTA [Suspect]
     Indication: MESOTHELIOMA MALIGNANT
     Dosage: 500 MG/M2, UNKNOWN
     Dates: start: 20130816, end: 20130816
  2. CARBOPLATIN [Concomitant]
     Indication: MESOTHELIOMA MALIGNANT
     Dosage: UNK, UNKNOWN
     Dates: start: 20130816

REACTIONS (7)
  - Mouth haemorrhage [Unknown]
  - Gingival bleeding [Unknown]
  - Platelet count decreased [Unknown]
  - Haemoglobin decreased [Unknown]
  - White blood cell count decreased [Unknown]
  - Pyrexia [Recovered/Resolved]
  - Off label use [Unknown]
